FAERS Safety Report 22917532 (Version 2)
Quarter: 2024Q4

REPORT INFORMATION
  Report Type: Report from Study
  Country: US (occurrence: US)
  Receive Date: 20230907
  Receipt Date: 20241025
  Transmission Date: 20250115
  Serious: Yes (Other)
  Sender: BAYER HEALTHCARE LLC
  Company Number: US-BAYER-2023A122279

PATIENT
  Age: 69 Year
  Sex: Female

DRUGS (1)
  1. AFRIN [Suspect]
     Active Substance: OXYMETAZOLINE
     Dosage: UNK

REACTIONS (1)
  - Drug dependence [Unknown]
